FAERS Safety Report 7889677-6 (Version None)
Quarter: 2011Q4

REPORT INFORMATION
  Report Type: 
  Country: None (occurrence: None)
  Receive Date: 20111103
  Receipt Date: 20110923
  Transmission Date: 20120403
  Serious: Yes (Other)
  Sender: FDA-Public Use
  Company Number: GR-BAYER-2011-090184

PATIENT
  Age: 11 Year
  Sex: Female

DRUGS (1)
  1. CIPROFLAXACIN [Suspect]
     Indication: BACTERAEMIA
     Dosage: UNK
     Route: 042
     Dates: start: 20080101, end: 20080101

REACTIONS (1)
  - SUPRAVENTRICULAR TACHYCARDIA [None]
